FAERS Safety Report 5143869-8 (Version None)
Quarter: 2006Q4

REPORT INFORMATION
  Report Type: 
  Country: None (occurrence: None)
  Receive Date: 20061030
  Receipt Date: 20061017
  Transmission Date: 20070319
  Serious: Yes (Congenital Anomaly, Other)
  Sender: FDA-Public Use
  Company Number: 2006127349

PATIENT
  Sex: Female

DRUGS (1)
  1. FLAGYL [Suspect]
     Indication: ILL-DEFINED DISORDER

REACTIONS (3)
  - DRUG EXPOSURE DURING PREGNANCY [None]
  - PREGNANCY [None]
  - TOOTH DISORDER [None]
